FAERS Safety Report 12257232 (Version 1)
Quarter: 2016Q2

REPORT INFORMATION
  Report Type: Report from Study
  Country: US (occurrence: US)
  Receive Date: 20160412
  Receipt Date: 20160412
  Transmission Date: 20160815
  Serious: Yes (Hospitalization)
  Sender: FDA-Public Use
  Company Number: US-ACTELION-A-NJ2016-134095

PATIENT
  Age: 68 Year
  Sex: Female

DRUGS (10)
  1. PEPCID [Concomitant]
     Active Substance: FAMOTIDINE
  2. PROCARDIA [Concomitant]
     Active Substance: NIFEDIPINE
  3. DEXILANT [Concomitant]
     Active Substance: DEXLANSOPRAZOLE
  4. AZATHIOPRINE. [Concomitant]
     Active Substance: AZATHIOPRINE
  5. RIOCIGUAT [Concomitant]
     Active Substance: RIOCIGUAT
  6. PHENOBARBITAL. [Concomitant]
     Active Substance: PHENOBARBITAL
  7. CYMBALTA [Concomitant]
     Active Substance: DULOXETINE HYDROCHLORIDE
  8. LOPERAMIDE [Concomitant]
     Active Substance: LOPERAMIDE
  9. MACITENTAN [Suspect]
     Active Substance: MACITENTAN
     Indication: PULMONARY HYPERTENSION
     Dosage: 10 MG, UNK
     Route: 048
     Dates: start: 20141111
  10. LEVOXYL [Concomitant]
     Active Substance: LEVOTHYROXINE SODIUM

REACTIONS (1)
  - Clostridium difficile infection [Not Recovered/Not Resolved]

NARRATIVE: CASE EVENT DATE: 20160317
